FAERS Safety Report 8603414-9 (Version None)
Quarter: 2012Q3

REPORT INFORMATION
  Report Type: 
  Country: None (occurrence: None)
  Receive Date: 20120817
  Receipt Date: 20120810
  Transmission Date: 20120928
  Serious: Yes (Other)
  Sender: FDA-Public Use
  Company Number: JP-ABBOTT-11P-087-0886819-00

PATIENT
  Sex: Female

DRUGS (26)
  1. HUMIRA [Suspect]
     Dates: start: 20100803, end: 20101108
  2. FUROSEMIDE [Concomitant]
     Indication: PRODUCT USED FOR UNKNOWN INDICATION
     Dosage: DAILY DOSE: 20MG
     Route: 048
     Dates: start: 20111014
  3. METHOTREXATE [Concomitant]
     Dates: start: 20110506
  4. METOPROLOL TARTRATE [Concomitant]
     Indication: PRODUCT USED FOR UNKNOWN INDICATION
     Dosage: DAILY DOSE: 40MG
     Route: 048
     Dates: start: 20110806
  5. AMLODIPINE BESYLATE [Concomitant]
     Indication: PRODUCT USED FOR UNKNOWN INDICATION
     Dosage: DAILY DOSE: 7.5MG
     Route: 048
     Dates: start: 20110806, end: 20111110
  6. HUMIRA [Suspect]
     Indication: RHEUMATOID ARTHRITIS
     Route: 058
     Dates: start: 20100128, end: 20100720
  7. HUMIRA [Suspect]
     Dates: start: 20101124
  8. HUMIRA [Suspect]
     Dates: start: 20110806, end: 20111013
  9. LEUCOVORIN CALCIUM [Concomitant]
     Indication: PROPHYLAXIS
     Route: 048
     Dates: start: 20110806
  10. RALOXIFENE HYDROCHLORIDE [Concomitant]
     Indication: PRODUCT USED FOR UNKNOWN INDICATION
     Dosage: DAILY DOSE: 60MG
     Route: 048
     Dates: start: 20110806
  11. METHOTREXATE [Concomitant]
     Dates: start: 20110806, end: 20111014
  12. METFORMIN HYDROCHLORIDE [Concomitant]
     Indication: PRODUCT USED FOR UNKNOWN INDICATION
     Dosage: DAILY DOSE: 500MG
     Route: 048
     Dates: start: 20110806, end: 20110915
  13. SITAGLIPTIN PHOSPHATE HYDRATE [Concomitant]
     Indication: PRODUCT USED FOR UNKNOWN INDICATION
     Dosage: DAILY DOSE: 50MG
     Route: 048
     Dates: start: 20110806, end: 20111222
  14. METHOTREXATE [Concomitant]
     Indication: RHEUMATOID ARTHRITIS
     Dates: start: 20090801
  15. METHOTREXATE [Concomitant]
     Dates: start: 20100720, end: 20100923
  16. METHOTREXATE [Concomitant]
     Dates: start: 20100924, end: 20110505
  17. METHOTREXATE [Concomitant]
     Dates: start: 20111015, end: 20111216
  18. TELMISARTAN [Concomitant]
     Indication: PRODUCT USED FOR UNKNOWN INDICATION
     Dosage: DAILY DOSE: 40MG
     Route: 048
     Dates: start: 20110806
  19. SPIRONOLACTONE [Concomitant]
     Indication: PRODUCT USED FOR UNKNOWN INDICATION
     Dosage: DAILY DOSE: 50MG
     Route: 048
     Dates: start: 20111014
  20. LANSOPRAZOLE [Concomitant]
     Indication: GASTRITIS PROPHYLAXIS
     Dosage: DAILY DOSE: 15MG
     Route: 048
     Dates: start: 20110806
  21. PRAVASTATIN SODIUM [Concomitant]
     Indication: PRODUCT USED FOR UNKNOWN INDICATION
     Dosage: DAILY DOSE: 20MG
     Route: 048
     Dates: start: 20110806
  22. DOXAZOSIN MESYLATE [Concomitant]
     Indication: PRODUCT USED FOR UNKNOWN INDICATION
     Dosage: DAILY DOSE: 1MG
     Route: 048
     Dates: start: 20110806
  23. AMINO ACID PREPARATIONS FOR HEPATIC CIRRHOSIS [Concomitant]
     Indication: PRODUCT USED FOR UNKNOWN INDICATION
     Dosage: DAILY DOSE: 12.45 GRAM
     Route: 048
     Dates: start: 20111028
  24. ALLOPURINOL [Concomitant]
     Indication: PRODUCT USED FOR UNKNOWN INDICATION
     Dosage: DAILY DOSE: 100MG
     Route: 048
     Dates: start: 20111221
  25. METHOTREXATE [Concomitant]
     Dates: start: 20111217
  26. LEUCOVORIN CALCIUM [Concomitant]
     Indication: ADVERSE DRUG REACTION

REACTIONS (5)
  - UTERINE LEIOMYOMA [None]
  - PERITONEAL DISORDER [None]
  - HEPATIC STEATOSIS [None]
  - HEPATIC CIRRHOSIS [None]
  - ASCITES [None]
